FAERS Safety Report 12167634 (Version 2)
Quarter: 2016Q1

REPORT INFORMATION
  Report Type: Report from Study
  Country: MX (occurrence: MX)
  Receive Date: 20160310
  Receipt Date: 20160321
  Transmission Date: 20160526
  Serious: Yes (Other)
  Sender: FDA-Public Use
  Company Number: PHHY2016MX031484

PATIENT
  Age: 84 Year
  Sex: Female
  Weight: 70 kg

DRUGS (1)
  1. ULTIBRO BREEZHALER [Suspect]
     Active Substance: GLYCOPYRRONIUM\INDACATEROL
     Indication: EMPHYSEMA
     Dosage: 1 (110/50) OT
     Route: 055

REACTIONS (2)
  - Eye infection [Unknown]
  - Malaise [Unknown]
